FAERS Safety Report 22609628 (Version 1)
Quarter: 2023Q2

REPORT INFORMATION
  Report Type: Report from Study
  Country: CN (occurrence: CN)
  Receive Date: 20230616
  Receipt Date: 20230616
  Transmission Date: 20230722
  Serious: Yes (Other)
  Sender: FDA-Public Use
  Company Number: CN-PFIZER INC-202300219743

PATIENT
  Age: 123 Month
  Sex: Female

DRUGS (3)
  1. CRIZOTINIB [Suspect]
     Active Substance: CRIZOTINIB
     Indication: Inflammatory myofibroblastic tumour
     Dosage: 2X 125 MG, 1X/DAY
  2. TOPOTECAN [Suspect]
     Active Substance: TOPOTECAN HYDROCHLORIDE
     Indication: Inflammatory myofibroblastic tumour
     Dosage: 1.2 MG/M2, DAY 1-5 AT THE INTERVAL OF 21 DAYS
     Route: 042
  3. CYCLOPHOSPHAMIDE [Suspect]
     Active Substance: CYCLOPHOSPHAMIDE
     Indication: Inflammatory myofibroblastic tumour
     Dosage: 400 MG/M2  DAY1-5 AT THE INTERVAL OF 21 DAYS
     Route: 042

REACTIONS (4)
  - Myelosuppression [Unknown]
  - Febrile neutropenia [Unknown]
  - Vomiting [Unknown]
  - Diarrhoea [Unknown]
